FAERS Safety Report 6283426-3 (Version None)
Quarter: 2009Q3

REPORT INFORMATION
  Report Type: 
  Country: None (occurrence: None)
  Receive Date: 20090724
  Receipt Date: 20090406
  Transmission Date: 20100115
  Serious: No
  Sender: FDA-Public Use
  Company Number: US-ALEXION-A200900255

PATIENT
  Sex: Female

DRUGS (15)
  1. SOLIRIS [Suspect]
     Indication: PAROXYSMAL NOCTURNAL HAEMOGLOBINURIA
     Dosage: 600 MG, QWK X4
     Route: 042
     Dates: start: 20070604, end: 20070625
  2. SOLIRIS [Suspect]
     Dosage: 900 MG, Q2WK
     Route: 042
     Dates: start: 20070709
  3. BENADRYL [Suspect]
     Dosage: UNK
     Route: 042
     Dates: start: 20090327, end: 20090327
  4. FOLIC ACID [Concomitant]
     Indication: PAROXYSMAL NOCTURNAL HAEMOGLOBINURIA
     Dosage: 1 MG, QD
     Route: 048
  5. NITROGLYCERIN [Concomitant]
     Indication: ANGINA PECTORIS
     Dosage: UNK, PRN
     Route: 045
  6. TOPROL-XL [Concomitant]
     Indication: HYPERTENSION
     Dosage: 25 MG, QD
     Route: 048
  7. LEXAPRO [Concomitant]
     Indication: DEPRESSION
     Dosage: 10 MG, QD
     Route: 048
  8. MIRAPEX [Concomitant]
     Indication: RESTLESS LEGS SYNDROME
     Dosage: 0.5 MG, TID
     Route: 048
  9. ZOCOR [Concomitant]
     Indication: BLOOD CHOLESTEROL
     Dosage: 10 MG, QD
     Route: 048
  10. PREVACID [Concomitant]
     Indication: GASTRIC DISORDER
     Dosage: 30 MG, UNK
     Route: 048
  11. CALTRATE                           /00108001/ [Concomitant]
     Dosage: 600 MG, QD
     Route: 048
  12. MIRALAX [Concomitant]
     Indication: CONSTIPATION
     Dosage: 17 G, UNK
     Route: 048
  13. EXELON                             /01383201/ [Concomitant]
     Indication: DEMENTIA
     Dosage: UNK, QD
     Route: 062
  14. NAMENDA [Concomitant]
     Indication: DEMENTIA
     Dosage: UNK
     Route: 048
  15. DESFERAL                           /00062903/ [Concomitant]
     Indication: IRON OVERLOAD
     Dosage: UNK

REACTIONS (3)
  - BLOOD PRODUCT TRANSFUSION DEPENDENT [None]
  - CONDITION AGGRAVATED [None]
  - HYPERSENSITIVITY [None]
